FAERS Safety Report 9659524 (Version 1)
Quarter: 2013Q4

REPORT INFORMATION
  Report Type: Report from Study
  Country: NL (occurrence: NL)
  Receive Date: 20131031
  Receipt Date: 20131031
  Transmission Date: 20140711
  Serious: Yes (Death)
  Sender: FDA-Public Use
  Company Number: PHHY2013NL122984

PATIENT
  Sex: Male

DRUGS (2)
  1. ZOMETA [Suspect]
     Indication: PROSTATE CANCER
     Dosage: 04 MG/100 ML, ONCE EVERY 04 WEEKS
     Route: 042
  2. ZOMETA [Suspect]
     Dosage: 04 MG/100 ML, ONCE EVERY 04 WEEKS
     Route: 042
     Dates: start: 20130906

REACTIONS (1)
  - Death [Fatal]
